FAERS Safety Report 24685008 (Version 3)
Quarter: 2025Q2

REPORT INFORMATION
  Report Type: Report from Study
  Country: US (occurrence: US)
  Receive Date: 20241202
  Receipt Date: 20250526
  Transmission Date: 20250716
  Serious: Yes (Other)
  Sender: JAZZ
  Company Number: US-JAZZ PHARMACEUTICALS-2022-US-029668

PATIENT
  Age: 33 Year
  Sex: Female

DRUGS (38)
  1. XYWAV [Suspect]
     Active Substance: CALCIUM OXYBATE\MAGNESIUM OXYBATE\POTASSIUM OXYBATE\SODIUM OXYBATE
     Indication: Hypersomnia
     Dosage: 3.75 GRAM, BID
     Route: 048
     Dates: start: 20220809, end: 20240502
  2. XYWAV [Suspect]
     Active Substance: CALCIUM OXYBATE\MAGNESIUM OXYBATE\POTASSIUM OXYBATE\SODIUM OXYBATE
     Indication: Narcolepsy
  3. XYWAV [Suspect]
     Active Substance: CALCIUM OXYBATE\MAGNESIUM OXYBATE\POTASSIUM OXYBATE\SODIUM OXYBATE
     Indication: Cataplexy
  4. XYWAV [Suspect]
     Active Substance: CALCIUM OXYBATE\MAGNESIUM OXYBATE\POTASSIUM OXYBATE\SODIUM OXYBATE
     Indication: Somnolence
  5. XYWAV [Suspect]
     Active Substance: CALCIUM OXYBATE\MAGNESIUM OXYBATE\POTASSIUM OXYBATE\SODIUM OXYBATE
  6. LISINOPRIL [Concomitant]
     Active Substance: LISINOPRIL
     Indication: Hypertension
     Dosage: 1 DOSAGE FORM, QD
     Route: 048
     Dates: start: 20220923
  7. PANTOPRAZOLE SODIUM [Concomitant]
     Active Substance: PANTOPRAZOLE SODIUM
     Dates: start: 20220923
  8. NALOXONE [Concomitant]
     Active Substance: NALOXONE
  9. DEXTROAMPHETAMINE [Concomitant]
     Active Substance: DEXTROAMPHETAMINE
     Dosage: 3 DOSAGE FORM, BID (BEOFRE BREAKFAST AND BEFORE LUNCH)
     Route: 048
  10. VALACYCLOVIR [Concomitant]
     Active Substance: VALACYCLOVIR HYDROCHLORIDE
  11. DULOXETINE [Concomitant]
     Active Substance: DULOXETINE
  12. DULOXETINE [Concomitant]
     Active Substance: DULOXETINE
     Dates: start: 20231107
  13. DULOXETINE [Concomitant]
     Active Substance: DULOXETINE
     Dates: start: 20231107
  14. BUPRENORPHINE HYDROCHLORIDE\NALOXONE HYDROCHLORIDE [Concomitant]
     Active Substance: BUPRENORPHINE HYDROCHLORIDE\NALOXONE HYDROCHLORIDE
  15. SERTRALINE [Concomitant]
     Active Substance: SERTRALINE HYDROCHLORIDE
  16. OXCARBAZEPINE [Concomitant]
     Active Substance: OXCARBAZEPINE
     Indication: Product used for unknown indication
     Route: 048
  17. ONDANSETRON [Concomitant]
     Active Substance: ONDANSETRON
  18. ERGOCALCIFEROL [Concomitant]
     Active Substance: ERGOCALCIFEROL
  19. BUPROPION [Concomitant]
     Active Substance: BUPROPION
  20. OXYBUTYNIN [Concomitant]
     Active Substance: OXYBUTYNIN
     Dates: start: 20230103
  21. IRON [Concomitant]
     Active Substance: IRON
     Dates: start: 20221230
  22. MOMETASONE [Concomitant]
     Active Substance: MOMETASONE
     Dosage: UNK, BID
  23. DOCUSATE SODIUM [Concomitant]
     Active Substance: DOCUSATE SODIUM
     Indication: Constipation
     Dosage: UNK, BID
     Route: 048
  24. OMEPRAZOLE [Concomitant]
     Active Substance: OMEPRAZOLE
     Route: 048
  25. INDOMETHACIN [Concomitant]
     Active Substance: INDOMETHACIN
     Dosage: UNK, TID
     Route: 048
  26. ATROVENT [Concomitant]
     Active Substance: IPRATROPIUM BROMIDE
     Indication: Product used for unknown indication
  27. DEXTROSE [Concomitant]
     Active Substance: DEXTROSE MONOHYDRATE
  28. LANCETAN [Concomitant]
  29. DIAZEPAM [Concomitant]
     Active Substance: DIAZEPAM
     Dates: start: 20231107
  30. FERROUS SULFATE [Concomitant]
     Active Substance: FERROUS SULFATE
     Indication: Product used for unknown indication
  31. PRILOSEC [Concomitant]
     Active Substance: OMEPRAZOLE MAGNESIUM
     Indication: Product used for unknown indication
     Dosage: 1 DOSAGE FORM, QD (BEFORE FRAKEFAST)
     Route: 048
  32. LIORESAL [Concomitant]
     Active Substance: BACLOFEN
     Indication: Product used for unknown indication
     Dosage: 1 DOSAGE FORM, QID
     Route: 048
  33. CYMBALTA [Concomitant]
     Active Substance: DULOXETINE HYDROCHLORIDE
     Indication: Product used for unknown indication
     Dosage: 1 DOSAGE FORM, QD
     Route: 048
  34. ZOLOFT [Concomitant]
     Active Substance: SERTRALINE HYDROCHLORIDE
     Indication: Product used for unknown indication
     Dosage: 1 DOSAGE FORM, QD
     Route: 048
  35. ZOFRAN [Concomitant]
     Active Substance: ONDANSETRON HYDROCHLORIDE
  36. TRILEPTAL [Concomitant]
     Active Substance: OXCARBAZEPINE
     Indication: Product used for unknown indication
     Route: 048
  37. VITAMIN D2 [Concomitant]
     Active Substance: ERGOCALCIFEROL
     Indication: Product used for unknown indication
     Dosage: 1 DOSAGE FORM, QW
     Route: 048
  38. WELLBUTRIN XL [Concomitant]
     Active Substance: BUPROPION HYDROCHLORIDE
     Indication: Product used for unknown indication
     Dosage: 3 DOSAGE FORM, QD (EACH MORNING)
     Route: 048

REACTIONS (18)
  - Rotator cuff syndrome [Recovered/Resolved]
  - Hunger [Unknown]
  - Electrocardiogram abnormal [Recovering/Resolving]
  - Influenza like illness [Unknown]
  - Incontinence [Unknown]
  - Anaemia [Unknown]
  - Cystocele [Unknown]
  - Essential hypertension [Unknown]
  - Gastrooesophageal reflux disease [Unknown]
  - Pain [Unknown]
  - Anger [Unknown]
  - Constipation [Unknown]
  - Arthritis [Unknown]
  - Nasopharyngitis [Unknown]
  - Illness [Unknown]
  - Headache [Unknown]
  - Intentional dose omission [Unknown]
  - Product dose omission issue [Unknown]

NARRATIVE: CASE EVENT DATE: 20221214
